FAERS Safety Report 12632941 (Version 2)
Quarter: 2016Q3

REPORT INFORMATION
  Report Type: Spontaneous
  Country: US (occurrence: US)
  Receive Date: 20160808
  Receipt Date: 20160808
  Transmission Date: 20161109
  Serious: No
  Sender: FDA-Public Use
  Company Number: US-BEH-2016057690

PATIENT
  Age: 64 Year
  Sex: Female
  Weight: 85 kg

DRUGS (32)
  1. EPIPEN [Concomitant]
     Active Substance: EPINEPHRINE
  2. BACTROBAN [Concomitant]
     Active Substance: MUPIROCIN\MUPIROCIN CALCIUM
  3. IPRATROPIUM [Concomitant]
     Active Substance: IPRATROPIUM
     Dosage: SPRAY
  4. LORATADINE. [Concomitant]
     Active Substance: LORATADINE
  5. OMEPRAZOLE. [Concomitant]
     Active Substance: OMEPRAZOLE
  6. PONARIS [Concomitant]
     Active Substance: CAJUPUT OIL\EUCALYPTUS OIL\PEPPERMINT OIL
  7. DIPHENHYDRAMINE. [Concomitant]
     Active Substance: DIPHENHYDRAMINE
  8. PATADAY [Concomitant]
     Active Substance: OLOPATADINE HYDROCHLORIDE
  9. NASONEX [Concomitant]
     Active Substance: MOMETASONE FUROATE
  10. BUPROPION HYDROCHLORIDE XL [Concomitant]
     Active Substance: BUPROPION HYDROCHLORIDE
  11. HIZENTRA [Suspect]
     Active Substance: HUMAN IMMUNOGLOBULIN G
     Indication: IMMUNODEFICIENCY COMMON VARIABLE
     Route: 058
  12. SPIRONOLACTONE. [Concomitant]
     Active Substance: SPIRONOLACTONE
  13. MUCINEX DM ER [Concomitant]
  14. L-LYSINE [Concomitant]
     Active Substance: LYSINE
  15. XOPENEX HFA [Concomitant]
     Active Substance: LEVALBUTEROL TARTRATE
  16. BUSPIRONE [Concomitant]
     Active Substance: BUSPIRONE HYDROCHLORIDE
  17. FLUOXETINE [Concomitant]
     Active Substance: FLUOXETINE HYDROCHLORIDE
  18. ABREVA [Concomitant]
     Active Substance: DOCOSANOL
  19. VITAMIN K [Concomitant]
     Active Substance: PHYTONADIONE
  20. VITAMIN D [Concomitant]
     Active Substance: CHOLECALCIFEROL
  21. VALACYCLOVIR [Concomitant]
     Active Substance: VALACYCLOVIR HYDROCHLORIDE
  22. KETOTIFEN [Concomitant]
     Active Substance: KETOTIFEN
  23. SINGULAIR [Concomitant]
     Active Substance: MONTELUKAST SODIUM
  24. SUDAFED [Concomitant]
     Active Substance: PSEUDOEPHEDRINE HYDROCHLORIDE
  25. ALIGN [Concomitant]
     Active Substance: BIFIDOBACTERIUM LONGUM SUBSP. INFANTIS
  26. VITAMIN B-100 COMPLEX [Concomitant]
  27. PATANASE [Concomitant]
     Active Substance: OLOPATADINE HYDROCHLORIDE
  28. HIZENTRA [Suspect]
     Active Substance: HUMAN IMMUNOGLOBULIN G
     Indication: HYPOGAMMAGLOBULINAEMIA
     Route: 058
  29. FEMHRT [Concomitant]
     Active Substance: ETHINYL ESTRADIOL\NORETHINDRONE ACETATE
  30. MAGNESIUM OXIDE. [Concomitant]
     Active Substance: MAGNESIUM OXIDE
  31. FISH OIL [Concomitant]
     Active Substance: FISH OIL
  32. ERYTHROMYCIN. [Concomitant]
     Active Substance: ERYTHROMYCIN

REACTIONS (3)
  - Viral infection [Unknown]
  - Ear infection [Unknown]
  - Sinusitis [Unknown]

NARRATIVE: CASE EVENT DATE: 20151106
